FAERS Safety Report 21335980 (Version 1)
Quarter: 2022Q3

REPORT INFORMATION
  Report Type: Spontaneous
  Country: CN (occurrence: CN)
  Receive Date: 20220915
  Receipt Date: 20220915
  Transmission Date: 20221027
  Serious: Yes (Hospitalization, Other)
  Sender: FDA-Public Use
  Company Number: None

PATIENT
  Age: 59 Year
  Sex: Female
  Weight: 61.4 kg

DRUGS (6)
  1. CYCLOPHOSPHAMIDE [Suspect]
     Active Substance: CYCLOPHOSPHAMIDE
     Indication: Breast cancer female
     Dosage: 0.995G G, QD, DILUTED WITH SODIUM CHLORIDE (150 ML)
     Route: 041
     Dates: start: 20220813, end: 20220813
  2. CYCLOPHOSPHAMIDE [Suspect]
     Active Substance: CYCLOPHOSPHAMIDE
     Dosage: SECOND CHEMOTHERAPY, DOSE REINTRODUCED,QD
     Route: 041
     Dates: start: 20220903, end: 20220903
  3. EPIRUBICIN HYDROCHLORIDE [Suspect]
     Active Substance: EPIRUBICIN HYDROCHLORIDE
     Indication: Breast cancer female
     Dosage: 150 MG, QD
     Route: 041
     Dates: start: 20220813, end: 20220813
  4. EPIRUBICIN HYDROCHLORIDE [Suspect]
     Active Substance: EPIRUBICIN HYDROCHLORIDE
     Dosage: SECOND CHEMOTHERAPY, DOSE REINTRODUCED, QD
     Route: 041
     Dates: start: 20220903, end: 20220903
  5. SODIUM CHLORIDE [Suspect]
     Active Substance: SODIUM CHLORIDE
     Indication: Medication dilution
     Dosage: 150 ML, QD, DILUTED WITH CYCLOPHOSPHAMIDE (0.995 G)
     Route: 041
     Dates: start: 20220813, end: 20220813
  6. SODIUM CHLORIDE [Suspect]
     Active Substance: SODIUM CHLORIDE
     Dosage: SECOND CHEMOTHERAPY, DOSE REINTRODUCED, QD
     Route: 041
     Dates: start: 20220903, end: 20220903

REACTIONS (6)
  - Frigophobia [Recovering/Resolving]
  - Myelosuppression [Recovered/Resolved]
  - Granulocytopenia [Recovered/Resolved]
  - Pyrexia [Recovered/Resolved]
  - Oropharyngeal pain [Recovering/Resolving]
  - Headache [Recovering/Resolving]

NARRATIVE: CASE EVENT DATE: 20220822
